FAERS Safety Report 16297727 (Version 1)
Quarter: 2019Q2

REPORT INFORMATION
  Report Type: Report from Study
  Country: FI (occurrence: FI)
  Receive Date: 20190510
  Receipt Date: 20190510
  Transmission Date: 20190711
  Serious: Yes (Death)
  Sender: FDA-Public Use
  Company Number: FI-TEVA-2019-FI-1046694

PATIENT
  Age: 39 Year
  Sex: Female

DRUGS (5)
  1. CAFFEINE. [Concomitant]
     Active Substance: CAFFEINE
     Route: 065
  2. VENLAFAXINE [Interacting]
     Active Substance: VENLAFAXINE HYDROCHLORIDE
     Route: 065
  3. OXAZEPAM. [Concomitant]
     Active Substance: OXAZEPAM
     Route: 065
  4. MIANSERIN [Concomitant]
     Active Substance: MIANSERIN
     Route: 065
  5. CITALOPRAM [Suspect]
     Active Substance: CITALOPRAM HYDROBROMIDE
     Route: 065

REACTIONS (3)
  - Drug ineffective [Fatal]
  - Completed suicide [Fatal]
  - Drug interaction [Fatal]
